FAERS Safety Report 12717482 (Version 3)
Quarter: 2016Q3

REPORT INFORMATION
  Report Type: Spontaneous
  Country: ES (occurrence: ES)
  Receive Date: 20160906
  Receipt Date: 20160915
  Transmission Date: 20161109
  Serious: Yes (Other)
  Sender: FDA-Public Use
  Company Number: ES-SUN PHARMACEUTICAL INDUSTRIES LTD-2016RR-123168

PATIENT
  Age: 21 Year
  Sex: Male

DRUGS (4)
  1. TERIPARATIDE [Suspect]
     Active Substance: TERIPARATIDE
     Indication: PRODUCT USED FOR UNKNOWN INDICATION
     Route: 065
  2. ALENDRONIC ACID [Suspect]
     Active Substance: ALENDRONIC ACID
     Indication: OSTEOGENESIS IMPERFECTA
     Dosage: 40 MG/WEEK, FROM 13 TO 16 YEARS OF AGE
     Route: 065
  3. ALENDRONIC ACID [Suspect]
     Active Substance: ALENDRONIC ACID
     Dosage: 20 MG/WEEK, 16 TO 18 YEARS OF AGE
     Route: 065
  4. PAMIDRONATE [Suspect]
     Active Substance: PAMIDRONATE DISODIUM
     Indication: OSTEOGENESIS IMPERFECTA
     Dosage: 1 MG/KG/DOSE, FOUR-MONTHLY INFUSIONS OVER 3 CONSECUTIVE DAYS, FROM THE AGE OF 10 YEARS TO 13
     Route: 042

REACTIONS (3)
  - Off label use [Recovered/Resolved]
  - Bone disorder [Not Recovered/Not Resolved]
  - Atypical femur fracture [Recovered/Resolved]
